FAERS Safety Report 23920047 (Version 2)
Quarter: 2024Q2

REPORT INFORMATION
  Report Type: Spontaneous
  Country: ES (occurrence: ES)
  Receive Date: 20240530
  Receipt Date: 20240627
  Transmission Date: 20240716
  Serious: Yes (Other)
  Sender: FDA-Public Use
  Company Number: None

PATIENT
  Age: 49 Year
  Sex: Female

DRUGS (2)
  1. QUETIAPINE [Interacting]
     Active Substance: QUETIAPINE
     Indication: Product used for unknown indication
     Dosage: QUETIAPINA (1136A)
     Route: 048
     Dates: start: 2024
  2. TRAZODONE HYDROCHLORIDE [Interacting]
     Active Substance: TRAZODONE HYDROCHLORIDE
     Indication: Product used for unknown indication
     Dosage: TRAZODONA (3160A)
     Route: 048
     Dates: start: 20240414, end: 20240427

REACTIONS (1)
  - Electrocardiogram QRS complex prolonged [Recovering/Resolving]

NARRATIVE: CASE EVENT DATE: 20240427
